FAERS Safety Report 6390979-3 (Version None)
Quarter: 2009Q4

REPORT INFORMATION
  Report Type: 
  Country: None (occurrence: None)
  Receive Date: 20091006
  Receipt Date: 20090924
  Transmission Date: 20100525
  Serious: Yes (Other)
  Sender: FDA-Public Use
  Company Number: US-ELI_LILLY_AND_COMPANY-US200909006631

PATIENT
  Age: 17 Year
  Sex: Female

DRUGS (2)
  1. CYMBALTA [Suspect]
     Indication: FIBROMYALGIA
     Dosage: 60 MG, UNKNOWN
     Route: 065
     Dates: start: 20080901
  2. AMITRIPTYLINE [Interacting]
     Dosage: UNK, UNKNOWN
     Route: 065

REACTIONS (5)
  - DRUG INTERACTION [None]
  - HEART RATE INCREASED [None]
  - HYPOTENSION [None]
  - MYDRIASIS [None]
  - SEROTONIN SYNDROME [None]
